FAERS Safety Report 4841920-3 (Version None)
Quarter: 2005Q4

REPORT INFORMATION
  Report Type: 
  Country: None (occurrence: None)
  Receive Date: 20051130
  Receipt Date: 20051003
  Transmission Date: 20060501
  Serious: No
  Sender: FDA-Public Use
  Company Number: US-GLAXOSMITHKLINE-A0576732A

PATIENT
  Age: 46 Year
  Sex: Male

DRUGS (8)
  1. WELLBUTRIN XL [Suspect]
     Indication: DEPRESSION
     Dosage: 300MG PER DAY
     Route: 048
     Dates: start: 20050101, end: 20050901
  2. OXYCONTIN [Concomitant]
  3. NEURONTIN [Concomitant]
  4. UNKNOWN MEDICATION [Concomitant]
  5. ZYRTEC [Concomitant]
  6. XANAX [Concomitant]
  7. CELEBREX [Concomitant]
  8. TAGAMET [Concomitant]

REACTIONS (2)
  - DYSPNOEA [None]
  - SINUSITIS [None]
